FAERS Safety Report 10398539 (Version 1)
Quarter: 2014Q3

REPORT INFORMATION
  Report Type: Report from Study
  Country: BR (occurrence: BR)
  Receive Date: 20140821
  Receipt Date: 20140821
  Transmission Date: 20150326
  Serious: Yes (Other)
  Sender: FDA-Public Use
  Company Number: PHHY2014BR103645

PATIENT
  Sex: Male
  Weight: 89 kg

DRUGS (2)
  1. DIOVAN AMLO FIX [Suspect]
     Active Substance: AMLODIPINE\VALSARTAN
     Indication: BLOOD PRESSURE ABNORMAL
     Dosage: 1 DF(160/5MG), DAILY
     Route: 048
     Dates: start: 20140721
  2. METFORMIN [Concomitant]
     Active Substance: METFORMIN HYDROCHLORIDE
     Indication: BLOOD GLUCOSE ABNORMAL
     Dosage: 2 DF(500MG), DAILY

REACTIONS (6)
  - Eye swelling [Recovering/Resolving]
  - Malaise [Recovering/Resolving]
  - Insomnia [Recovering/Resolving]
  - Eyelid oedema [Recovering/Resolving]
  - Pain [Not Recovered/Not Resolved]
  - Micturition frequency decreased [Recovering/Resolving]
